FAERS Safety Report 4592713-6 (Version None)
Quarter: 2005Q1

REPORT INFORMATION
  Report Type: 
  Country: None (occurrence: None)
  Receive Date: 20050228
  Receipt Date: 20050119
  Transmission Date: 20050727
  Serious: Yes (Hospitalization)
  Sender: FDA-Public Use
  Company Number: PHBS2005IT01255

PATIENT
  Age: 67 Year
  Sex: Female

DRUGS (13)
  1. DILATREND [Concomitant]
     Dosage: 3.12 MG/D
     Route: 048
     Dates: start: 20041214
  2. ORUDIS [Concomitant]
     Dosage: 100 MG/D
     Route: 030
     Dates: start: 20041218, end: 20041218
  3. LEXOTAN [Concomitant]
     Dosage: 20 DROPS/D
     Route: 048
     Dates: start: 20041214
  4. CONTRAMAL [Concomitant]
     Dosage: 20 DROPS
     Dates: start: 20041217
  5. NEURONTIN [Concomitant]
     Dosage: 600 MG/D
     Route: 048
     Dates: start: 20041214, end: 20041221
  6. ASPIRIN [Concomitant]
     Dosage: 300 MG/D
     Route: 048
     Dates: start: 20041214, end: 20041223
  7. SINVACOR [Concomitant]
     Dosage: 40 MG/D
     Route: 048
     Dates: start: 20041214, end: 20041221
  8. ZOMETA [Suspect]
     Indication: METASTASES TO BONE
     Dosage: 4 MG, ONCE/SINGLE
     Route: 042
     Dates: start: 20041217, end: 20041217
  9. GLIBENCLAMIDE W/METFORMIN HYDROCHLORIDE [Concomitant]
     Dosage: 1515 MG/D
     Route: 048
     Dates: start: 20041214, end: 20041221
  10. NEO-LOTAN [Concomitant]
     Dosage: 50 MG/D
     Route: 048
     Dates: start: 20041214, end: 20041221
  11. RANIDIL [Concomitant]
     Dosage: 150 MG/D
     Route: 048
     Dates: start: 20041214, end: 20041217
  12. ZOLOFT [Concomitant]
     Dosage: 25 MG/D
     Route: 048
     Dates: start: 20041207, end: 20041223
  13. PROTAPHAN [Concomitant]
     Dosage: 20 IU ({100)/D
     Route: 058
     Dates: start: 20041214

REACTIONS (3)
  - BLOOD CREATININE INCREASED [None]
  - RENAL FAILURE ACUTE [None]
  - RENAL TUBULAR NECROSIS [None]
